FAERS Safety Report 7644727-7 (Version None)
Quarter: 2011Q3

REPORT INFORMATION
  Report Type: 
  Country: None (occurrence: None)
  Receive Date: 20110729
  Receipt Date: 20110727
  Transmission Date: 20111222
  Serious: Yes (Death, Life-Threatening, Hospitalization)
  Sender: FDA-Public Use
  Company Number: FR-SANOFI-AVENTIS-2011SA018355

PATIENT
  Age: 64 Year
  Sex: Male

DRUGS (8)
  1. CORDARONE [Suspect]
     Indication: ATRIAL FIBRILLATION
     Route: 048
     Dates: end: 20110119
  2. BISOPROLOL FUMARATE [Concomitant]
  3. ZESTRIL [Concomitant]
  4. POTASSIUM CHLORIDE [Concomitant]
  5. PREVISCAN [Concomitant]
  6. LEVOTHYROXINE SODIUM [Concomitant]
  7. FUROSEMIDE [Concomitant]
  8. MULTAQ [Suspect]
     Indication: ATRIAL FIBRILLATION
     Route: 048
     Dates: start: 20110119, end: 20110222

REACTIONS (14)
  - ATRIAL FIBRILLATION [None]
  - ELECTROCARDIOGRAM ST SEGMENT DEPRESSION [None]
  - ATRIAL THROMBOSIS [None]
  - HYPOTHYROIDISM [None]
  - INTERSTITIAL LUNG DISEASE [None]
  - MYOCARDIAL ISCHAEMIA [None]
  - ANAEMIA [None]
  - HAEMORRHAGIC CEREBRAL INFARCTION [None]
  - PULMONARY ARTERIAL HYPERTENSION [None]
  - HYPERGLYCAEMIA [None]
  - CAROTID ARTERY THROMBOSIS [None]
  - NECROSIS [None]
  - DISEASE RECURRENCE [None]
  - ACUTE RESPIRATORY DISTRESS SYNDROME [None]
